FAERS Safety Report 17902694 (Version 2)
Quarter: 2020Q4

REPORT INFORMATION
  Report Type: Spontaneous
  Country: DE (occurrence: DE)
  Receive Date: 20200617
  Receipt Date: 20201027
  Transmission Date: 20210113
  Serious: Yes (Other)
  Sender: FDA-Public Use
  Company Number: DE-ROCHE-2593479

PATIENT
  Sex: Female

DRUGS (1)
  1. ALECENSA [Suspect]
     Active Substance: ALECTINIB HYDROCHLORIDE
     Indication: LUNG NEOPLASM MALIGNANT
     Route: 065

REACTIONS (4)
  - Atrial fibrillation [Unknown]
  - Pulmonary oedema [Unknown]
  - Pulmonary imaging procedure abnormal [Unknown]
  - Pulmonary congestion [Unknown]
